FAERS Safety Report 7064472-9 (Version None)
Quarter: 2010Q4

REPORT INFORMATION
  Report Type: 
  Country: None (occurrence: None)
  Receive Date: 20101027
  Receipt Date: 20101013
  Transmission Date: 20110411
  Serious: Yes (Hospitalization)
  Sender: FDA-Public Use
  Company Number: JP-PFIZER INC-2010112151

PATIENT
  Age: 65 Year
  Sex: Female
  Weight: 41.5 kg

DRUGS (8)
  1. CELECOX [Suspect]
     Indication: ARTHRALGIA
     Dosage: 100 MG, 2X/DAY
     Route: 048
     Dates: start: 20100809
  2. HYALURONATE SODIUM [Suspect]
     Indication: ARTHRALGIA
     Dosage: 25 MG, UNKNOWN/D
     Route: 014
     Dates: start: 20100809
  3. GASTER [Concomitant]
     Dosage: 10 MG, UNK
     Dates: start: 20100809
  4. MYSLEE [Concomitant]
     Dosage: 5 MG, UNK
     Dates: start: 20100809
  5. 8-HOUR BAYER [Concomitant]
     Dosage: UNK
     Route: 048
     Dates: start: 20100809
  6. CANDESARTAN CILEXETIL [Concomitant]
     Dosage: UNK
     Route: 048
     Dates: start: 20100809
  7. CILOSTAZOL [Concomitant]
     Dosage: UNK
     Route: 048
     Dates: start: 20100809
  8. JUVELA [Concomitant]
     Dosage: UNK
     Route: 048
     Dates: start: 20100809

REACTIONS (1)
  - RASH GENERALISED [None]
